FAERS Safety Report 13243348 (Version 1)
Quarter: 2017Q1

REPORT INFORMATION
  Report Type: Spontaneous
  Country: GB (occurrence: GB)
  Receive Date: 20170217
  Receipt Date: 20170217
  Transmission Date: 20170428
  Serious: Yes (Hospitalization, Other)
  Sender: FDA-Public Use
  Company Number: GB-PFIZER INC-2017067065

PATIENT
  Age: 11 Month
  Sex: Female
  Weight: 5.6 kg

DRUGS (4)
  1. OMEPRAZOLE. [Concomitant]
     Active Substance: OMEPRAZOLE
     Dosage: UNK
  2. RANITIDINE. [Concomitant]
     Active Substance: RANITIDINE
     Dosage: UNK
  3. SODIUM FEREDETATE [Concomitant]
     Active Substance: SODIUM FEREDETATE
     Dosage: UNK
  4. PAMIDRONATE DISODIUM. [Suspect]
     Active Substance: PAMIDRONATE DISODIUM
     Indication: OSTEOGENESIS IMPERFECTA
     Dosage: 1.25MG/KG/DAY OVER 2 CONSECUTIVE DAYS.
     Route: 042
     Dates: start: 20161027, end: 20161028

REACTIONS (4)
  - Respiratory distress [Unknown]
  - Rhabdomyolysis [Recovered/Resolved]
  - Hyperpyrexia [Unknown]
  - Product use issue [Unknown]

NARRATIVE: CASE EVENT DATE: 2016
